FAERS Safety Report 7483255-9 (Version None)
Quarter: 2011Q2

REPORT INFORMATION
  Report Type: 
  Country: None (occurrence: None)
  Receive Date: 20110517
  Receipt Date: 20110504
  Transmission Date: 20111010
  Serious: Yes (Other)
  Sender: FDA-Public Use
  Company Number: IL-CELGENEUS-082-21880-11033404

PATIENT
  Age: 72 Year
  Sex: Female

DRUGS (7)
  1. ELTROXIN [Concomitant]
     Route: 065
  2. REVLIMID [Suspect]
     Indication: MULTIPLE MYELOMA
     Dosage: 25 MILLIGRAM
     Route: 048
     Dates: start: 20110117
  3. REVLIMID [Suspect]
     Route: 048
  4. EPREX [Concomitant]
     Route: 065
     Dates: start: 20100110
  5. ASPIRIN [Concomitant]
     Indication: ANTICOAGULANT THERAPY
     Route: 065
     Dates: start: 20110117
  6. RECORMON [Concomitant]
     Route: 065
     Dates: start: 20100110
  7. DEXAMETHASONE [Concomitant]
     Indication: MULTIPLE MYELOMA
     Route: 065
     Dates: start: 20110117

REACTIONS (2)
  - ANOSMIA [None]
  - DEAFNESS [None]
